FAERS Safety Report 14572087 (Version 3)
Quarter: 2019Q3

REPORT INFORMATION
  Report Type: Report from Study
  Country: KR (occurrence: KR)
  Receive Date: 20180226
  Receipt Date: 20190820
  Transmission Date: 20191004
  Serious: Yes (Hospitalization)
  Sender: FDA-Public Use
  Company Number: KR-BAYER-2018-031088

PATIENT
  Age: 46 Year
  Sex: Male
  Weight: 96.2 kg

DRUGS (12)
  1. OXYCODONE [Concomitant]
     Active Substance: OXYCODONE
     Dosage: PRN MG
     Route: 048
     Dates: start: 20170227
  2. PYRIDOXINE [Concomitant]
     Active Substance: PYRIDOXINE
     Dosage: 50 MG
     Route: 048
     Dates: start: 20170330
  3. MECOBALAMIN [Concomitant]
     Active Substance: METHYLCOBALAMIN
     Dosage: 1500 MCG
     Route: 048
     Dates: start: 20170310, end: 20170402
  4. FOLIC ACID. [Concomitant]
     Active Substance: FOLIC ACID
     Dosage: 1 MG
     Route: 048
     Dates: start: 20170310
  5. STIVARGA [Suspect]
     Active Substance: REGORAFENIB
     Indication: COLORECTAL CANCER
     Dosage: DAILY DOSE, 160 MG
     Route: 048
     Dates: start: 20170407, end: 20170427
  6. TARGIN [Concomitant]
     Active Substance: NALOXONE HYDROCHLORIDE\OXYCODONE HYDROCHLORIDE
     Dosage: PRN MG
     Route: 048
     Dates: start: 20170320
  7. STIVARGA [Suspect]
     Active Substance: REGORAFENIB
     Indication: COLORECTAL CANCER
     Dosage: DAILY DOSE, 160 MG
     Route: 048
     Dates: start: 20170310, end: 20170330
  8. ESOMEPRAZOLE. [Concomitant]
     Active Substance: ESOMEPRAZOLE MAGNESIUM
     Dosage: 20 MG
     Route: 048
     Dates: start: 20170227, end: 20170406
  9. ALMAGATE [Concomitant]
     Active Substance: ALMAGATE
     Dosage: 45 ML
     Route: 048
     Dates: start: 20170310, end: 20170405
  10. SUCRALFATE. [Concomitant]
     Active Substance: SUCRALFATE
     Dosage: 45 ML
     Route: 048
     Dates: start: 20170406, end: 20170417
  11. LANSOPRAZOLE. [Concomitant]
     Active Substance: LANSOPRAZOLE
     Dosage: 15 MG
     Route: 048
     Dates: start: 20170405, end: 20170417
  12. PERIOLIMEL [Concomitant]
     Dosage: 1000 ML
     Route: 042
     Dates: start: 20170404, end: 20170405

REACTIONS (2)
  - Abdominal pain [Not Recovered/Not Resolved]
  - Cough [Recovered/Resolved]

NARRATIVE: CASE EVENT DATE: 20170403
